FAERS Safety Report 25919051 (Version 1)
Quarter: 2025Q4

REPORT INFORMATION
  Report Type: Spontaneous
  Country: US (occurrence: US)
  Receive Date: 20251014
  Receipt Date: 20251014
  Transmission Date: 20260117
  Serious: No
  Sender: BAYER HEALTHCARE LLC
  Company Number: US-BAYER-2025A132604

PATIENT
  Age: 47 Year
  Sex: Female

DRUGS (5)
  1. MIRALAX [Suspect]
     Active Substance: POLYETHYLENE GLYCOL 3350
     Indication: Product used for unknown indication
     Dosage: UNK
  2. LINACLOTIDE [Concomitant]
     Active Substance: LINACLOTIDE
     Indication: Irritable bowel syndrome
     Dosage: 72 MCG QD
     Route: 048
     Dates: start: 20250630, end: 20250703
  3. LINACLOTIDE [Concomitant]
     Active Substance: LINACLOTIDE
     Indication: Irritable bowel syndrome
     Dosage: 145 MCG, QD
     Route: 048
     Dates: start: 20250704, end: 20250707
  4. LINACLOTIDE [Concomitant]
     Active Substance: LINACLOTIDE
     Indication: Irritable bowel syndrome
     Dosage: 290 MCG  FOR FEW WEEKS
     Route: 048
     Dates: start: 20250708
  5. LINACLOTIDE [Concomitant]
     Active Substance: LINACLOTIDE
     Indication: Irritable bowel syndrome
     Dosage: 290 MCG  FOR FEW WEEKS
     Route: 048
     Dates: start: 202507

REACTIONS (1)
  - Flatulence [None]

NARRATIVE: CASE EVENT DATE: 20250101
